FAERS Safety Report 19146400 (Version 1)
Quarter: 2021Q2

REPORT INFORMATION
  Report Type: Report from Study
  Country: US (occurrence: US)
  Receive Date: 20210416
  Receipt Date: 20210416
  Transmission Date: 20210717
  Serious: Yes (Other)
  Sender: FDA-Public Use
  Company Number: US-ROCHE-2145740

PATIENT
  Age: 68 Year
  Sex: Male
  Weight: 65 kg

DRUGS (3)
  1. ATEZOLIZUMAB. [Suspect]
     Active Substance: ATEZOLIZUMAB
     Indication: COLORECTAL CANCER METASTATIC
     Dosage: START DATE OF COURSE ASSOCIATED WITH EXPEDITED REPORT: 20/JUN/2018?LAST DOSE PRIOR TO EVENT: 14/SEP/
     Route: 042
     Dates: start: 20180109
  2. CAPECITABINE. [Suspect]
     Active Substance: CAPECITABINE
     Indication: COLORECTAL CANCER METASTATIC
     Dosage: 2800 MG, 14 DAYS OUT OF 21 DAYS?LAST DOSE PRIOR TO EVENT: 27/SEP/2018?DOSE: 850 OR 1000 MG/M^2
     Route: 048
     Dates: start: 20180109, end: 20180605
  3. BEVACIZUMAB. [Suspect]
     Active Substance: BEVACIZUMAB
     Indication: COLORECTAL CANCER METASTATIC
     Dosage: 52.5 MG, DOSE WAS HELD ON 20/JUN/2018?LAST DOSE PRIOR TO EVENT: 14/SEP/2018?OVER 30?90 MINUTES ON DA
     Route: 042
     Dates: start: 20180109, end: 20180523

REACTIONS (1)
  - Hypertension [Unknown]

NARRATIVE: CASE EVENT DATE: 20180620
